FAERS Safety Report 7502246-2 (Version None)
Quarter: 2011Q2

REPORT INFORMATION
  Report Type: 
  Country: None (occurrence: None)
  Receive Date: 20110525
  Receipt Date: 20110510
  Transmission Date: 20111010
  Serious: Yes (Other)
  Sender: FDA-Public Use
  Company Number: US-JNJFOC-20110404949

PATIENT
  Sex: Female
  Weight: 63.5 kg

DRUGS (7)
  1. REMICADE [Suspect]
     Route: 042
     Dates: start: 20110125
  2. REMICADE [Suspect]
     Route: 042
     Dates: start: 20110222
  3. REMICADE [Suspect]
     Indication: CROHN'S DISEASE
     Route: 042
     Dates: start: 20110222
  4. REMICADE [Suspect]
     Indication: INFLAMMATORY BOWEL DISEASE
     Route: 042
     Dates: start: 20110125
  5. REMICADE [Suspect]
     Route: 042
     Dates: start: 20110111
  6. REMICADE [Suspect]
     Route: 042
     Dates: start: 20110111
  7. ASACOL [Concomitant]
     Indication: INFLAMMATORY BOWEL DISEASE

REACTIONS (4)
  - HYPOAESTHESIA [None]
  - CYANOSIS [None]
  - PARAESTHESIA [None]
  - PAIN OF SKIN [None]
